FAERS Safety Report 26177775 (Version 1)
Quarter: 2025Q4

REPORT INFORMATION
  Report Type: Spontaneous
  Country: JP (occurrence: JP)
  Receive Date: 20251219
  Receipt Date: 20251219
  Transmission Date: 20260117
  Serious: Yes (Other)
  Sender: ABBVIE
  Company Number: JP-ABBVIE-6596380

PATIENT

DRUGS (1)
  1. HUMIRA [Suspect]
     Active Substance: ADALIMUMAB
     Indication: Crohn^s disease
     Dosage: FORM STRENGTH: 80 MILLIGRAM
     Route: 058
     Dates: start: 20251202

REACTIONS (6)
  - Haemophagocytic lymphohistiocytosis [Recovered/Resolved]
  - Lupus-like syndrome [Recovered/Resolved]
  - Pyrexia [Unknown]
  - Full blood count decreased [Unknown]
  - Serum ferritin increased [Unknown]
  - DNA antibody positive [Unknown]

NARRATIVE: CASE EVENT DATE: 20251201
